FAERS Safety Report 5535529-6 (Version None)
Quarter: 2007Q4

REPORT INFORMATION
  Report Type: 
  Country: None (occurrence: None)
  Receive Date: 20071206
  Receipt Date: 20071203
  Transmission Date: 20080405
  Serious: Yes (Death, Other)
  Sender: FDA-Public Use
  Company Number: US-AVENTIS-200717014US

PATIENT
  Sex: Female

DRUGS (2)
  1. LOVENOX [Suspect]
     Dosage: DOSE: UNK
     Dates: start: 20070718, end: 20070801
  2. LOVENOX [Suspect]
     Dosage: DOSE: UNK
     Dates: start: 20070718, end: 20070801

REACTIONS (4)
  - CEREBRAL HAEMORRHAGE [None]
  - CEREBRAL THROMBOSIS [None]
  - DRUG INEFFECTIVE [None]
  - THROMBOSIS [None]
